FAERS Safety Report 9328814 (Version 1)
Quarter: 2013Q2

REPORT INFORMATION
  Report Type: Spontaneous
  Country: US (occurrence: US)
  Receive Date: 20130604
  Receipt Date: 20130604
  Transmission Date: 20140414
  Serious: Yes (Other)
  Sender: FDA-Public Use
  Company Number: US-INCYTE CORPORATION-2013IN001064

PATIENT
  Age: 80 Year
  Sex: Female

DRUGS (1)
  1. JAKAFI [Suspect]
     Indication: POLYCYTHAEMIA VERA
     Dosage: 15 MG, BID
     Route: 048
     Dates: start: 20120101, end: 20130504

REACTIONS (2)
  - Dyspnoea [Recovering/Resolving]
  - Fatigue [Recovering/Resolving]
